FAERS Safety Report 5061865-6 (Version None)
Quarter: 2006Q3

REPORT INFORMATION
  Report Type: 
  Country: None (occurrence: None)
  Receive Date: 20060703
  Receipt Date: 20060209
  Transmission Date: 20061208
  Serious: No
  Sender: FDA-Public Use
  Company Number: 2006S1001228

PATIENT
  Age: 55 Year
  Sex: Female

DRUGS (4)
  1. CLOZAPINE [Suspect]
     Indication: SCHIZOPHRENIA
     Dosage: 400 MG;HS;ORAL
     Route: 048
     Dates: start: 20000401
  2. ARIPIPRAZOLE [Concomitant]
  3. DIAZEPAM [Concomitant]
  4. ESOMEPRAZOLE MAGNESIUM [Concomitant]

REACTIONS (2)
  - GRANULOCYTOPENIA [None]
  - LEUKOPENIA [None]
